FAERS Safety Report 4460677-1 (Version None)
Quarter: 2004Q3

REPORT INFORMATION
  Report Type: 
  Country: None (occurrence: None)
  Receive Date: 20040928
  Receipt Date: 20040716
  Transmission Date: 20050211
  Serious: No
  Sender: FDA-Public Use
  Company Number: US-GLAXOSMITHKLINE-A0518622A

PATIENT
  Age: 77 Year
  Sex: Female

DRUGS (5)
  1. ADVAIR DISKUS 100/50 [Suspect]
     Dosage: 1PUFF TWICE PER DAY
     Route: 055
  2. XANAX [Concomitant]
  3. ZESTRIL [Concomitant]
  4. MULTIVITAMIN [Concomitant]
  5. ALBUTEROL [Concomitant]

REACTIONS (1)
  - DYSPHONIA [None]
